FAERS Safety Report 4295545-1 (Version None)
Quarter: 2004Q1

REPORT INFORMATION
  Report Type: 
  Country: None (occurrence: None)
  Receive Date: 20040216
  Receipt Date: 20030716
  Transmission Date: 20041129
  Serious: No
  Sender: FDA-Public Use
  Company Number: US-GLAXOSMITHKLINE-A0417216A

PATIENT
  Sex: Female

DRUGS (1)
  1. PAXIL [Suspect]
     Dates: start: 20000101

REACTIONS (7)
  - ABNORMAL DREAMS [None]
  - ACNE [None]
  - ANGER [None]
  - ANXIETY [None]
  - FATIGUE [None]
  - HYPERHIDROSIS [None]
  - WEIGHT INCREASED [None]
